FAERS Safety Report 13853640 (Version 1)
Quarter: 2017Q3

REPORT INFORMATION
  Report Type: Spontaneous
  Country: US (occurrence: US)
  Receive Date: 20170810
  Receipt Date: 20170810
  Transmission Date: 20171127
  Serious: Yes (Hospitalization, Other)
  Sender: FDA-Public Use
  Company Number: None

PATIENT
  Age: 65 Year
  Sex: Female
  Weight: 48.15 kg

DRUGS (1)
  1. PROLIA [Suspect]
     Active Substance: DENOSUMAB
     Indication: OSTEOPOROSIS
     Dosage: QUANTITY:1 INJECTION;OTHER FREQUENCY:6 MONTHS;?
     Route: 058
     Dates: start: 20170615

REACTIONS (8)
  - Paraesthesia [None]
  - Blood calcium decreased [None]
  - Renal impairment [None]
  - Blood magnesium decreased [None]
  - Nausea [None]
  - Vertigo [None]
  - Dialysis [None]
  - Renal failure [None]

NARRATIVE: CASE EVENT DATE: 20170720
